FAERS Safety Report 15789674 (Version 2)
Quarter: 2019Q1

REPORT INFORMATION
  Report Type: Spontaneous
  Country: AT (occurrence: AT)
  Receive Date: 20190104
  Receipt Date: 20190115
  Transmission Date: 20190417
  Serious: Yes (Other)
  Sender: FDA-Public Use
  Company Number: US-PFIZER INC-2018535827

PATIENT
  Age: 4 Year

DRUGS (1)
  1. TISSUCOL IMMUNO [Suspect]
     Active Substance: FIBRINOGEN HUMAN\THROMBIN HUMAN
     Indication: SURGERY
     Dosage: UNK

REACTIONS (1)
  - Pulmonary haemorrhage [Unknown]
